FAERS Safety Report 9233324 (Version 3)
Quarter: 2013Q2

REPORT INFORMATION
  Report Type: Spontaneous
  Country: US (occurrence: US)
  Receive Date: 20130416
  Receipt Date: 20130523
  Transmission Date: 20140414
  Serious: Yes (Other)
  Sender: FDA-Public Use
  Company Number: US-ELI_LILLY_AND_COMPANY-US201304002236

PATIENT
  Age: 50 Year
  Sex: Male

DRUGS (4)
  1. HUMULIN NPH [Suspect]
     Dosage: UNK, PRN
  2. HUMULIN NPH [Suspect]
  3. HUMULIN REGULAR [Suspect]
     Indication: TYPE 1 DIABETES MELLITUS
     Dosage: UNK, PRN
  4. HUMULIN REGULAR [Suspect]
     Dosage: UNK UNK, PRN

REACTIONS (3)
  - Convulsion [Recovered/Resolved]
  - Blood glucose increased [Unknown]
  - Malaise [Unknown]
